FAERS Safety Report 5785982-8 (Version None)
Quarter: 2008Q2

REPORT INFORMATION
  Report Type: 
  Country: None (occurrence: None)
  Receive Date: 20080624
  Receipt Date: 20080612
  Transmission Date: 20081010
  Serious: Yes (Other)
  Sender: FDA-Public Use
  Company Number: PHHY2008NO08914

PATIENT
  Sex: Female

DRUGS (1)
  1. GLIVEC [Suspect]
     Indication: CHRONIC MYELOID LEUKAEMIA
     Dosage: 400 MG/DAY
     Dates: start: 20070201, end: 20080401

REACTIONS (4)
  - ANAEMIA [None]
  - BREAST CANCER METASTATIC [None]
  - PANCYTOPENIA [None]
  - THROMBOCYTOPENIA [None]
